FAERS Safety Report 8903215 (Version 5)
Quarter: 2013Q1

REPORT INFORMATION
  Report Type: Spontaneous
  Country: US (occurrence: US)
  Receive Date: 20121112
  Receipt Date: 20130128
  Transmission Date: 20140127
  Serious: Yes (Hospitalization, Other)
  Sender: FDA-Public Use
  Company Number: US-BIOGENIDEC-2012BI051062

PATIENT
  Age: 59 Year
  Sex: Female

DRUGS (19)
  1. TYSABRI [Suspect]
     Indication: MULTIPLE SCLEROSIS
     Route: 042
     Dates: start: 20101102
  2. TYSABRI [Suspect]
     Indication: MULTIPLE SCLEROSIS
     Route: 042
  3. AMANTADINE [Concomitant]
  4. CALTRATE [Concomitant]
  5. CELEBREX [Concomitant]
  6. VITAMIN B12 [Concomitant]
  7. FLEXIRIL [Concomitant]
  8. LASIX [Concomitant]
  9. LORTAB [Concomitant]
  10. NEURONTIN [Concomitant]
  11. NEXIUM [Concomitant]
  12. NYSTATIN [Concomitant]
  13. POTASSIUM CHLORIDE [Concomitant]
  14. PREDNISONE [Concomitant]
  15. PROLIA [Concomitant]
  16. SINEMET-CR 25 [Concomitant]
  17. SPIRONOLACTONE [Concomitant]
  18. TRAMADOL [Concomitant]
  19. ZOCOR [Concomitant]

REACTIONS (11)
  - Rhabdomyolysis [Unknown]
  - Renal failure acute [Unknown]
  - Spinal compression fracture [Unknown]
  - Iron deficiency anaemia [Unknown]
  - Fall [Recovered/Resolved]
  - Head injury [Unknown]
  - Pain [Unknown]
  - Cellulitis [Unknown]
  - Wound [Unknown]
  - Chronic lymphocytic leukaemia [Not Recovered/Not Resolved]
  - Pneumonia [Recovered/Resolved]
